FAERS Safety Report 16532857 (Version 2)
Quarter: 2019Q3

REPORT INFORMATION
  Report Type: Spontaneous
  Country: FR (occurrence: FR)
  Receive Date: 20190705
  Receipt Date: 20190716
  Transmission Date: 20191004
  Serious: Yes (Death)
  Sender: FDA-Public Use
  Company Number: FR-PFIZER INC-2019284436

PATIENT
  Sex: Female

DRUGS (13)
  1. DOMPERIDONE [Suspect]
     Active Substance: DOMPERIDONE
     Dosage: 10 MG, DAILY
     Route: 064
     Dates: start: 2015, end: 20150723
  2. DIFFU-K [Suspect]
     Active Substance: POTASSIUM CHLORIDE
     Dosage: 2 DF, 3X/DAY
     Route: 064
     Dates: end: 201505
  3. LOVENOX [Suspect]
     Active Substance: ENOXAPARIN SODIUM
     Dosage: 0.4 ML, DAILY
     Route: 064
     Dates: start: 20150329, end: 20150416
  4. CIPROFLOXACIN. [Suspect]
     Active Substance: CIPROFLOXACIN
     Indication: CAMPYLOBACTER TEST POSITIVE
     Dosage: UNK
     Route: 064
     Dates: start: 20150403, end: 20150408
  5. ROWASA [Suspect]
     Active Substance: MESALAMINE
     Dosage: 2 G, DAILY
     Route: 064
     Dates: end: 20150416
  6. DIFFU-K [Suspect]
     Active Substance: POTASSIUM CHLORIDE
     Dosage: 1 DF, 3X/DAY
     Dates: start: 201505, end: 20150723
  7. CALCIDOSE [CALCIUM CARBONATE] [Suspect]
     Active Substance: CALCIUM CARBONATE
     Dosage: 500 MG, DAILY
     Route: 064
  8. SPASFON [PHLOROGLUCINOL] [Suspect]
     Active Substance: PHLOROGLUCINOL
     Dosage: UNK, AS NEEDED
     Route: 064
  9. TARDYFERON [Suspect]
     Active Substance: FERROUS SULFATE
     Indication: IRON DEFICIENCY
     Dosage: 80 MG, DAILY
     Route: 064
     Dates: start: 20150516, end: 20150723
  10. METHYLPREDNISOLONE SODIUM SUCCINATE. [Suspect]
     Active Substance: METHYLPREDNISOLONE SODIUM SUCCINATE
     Dosage: 0.8 MG/KG, UNK
     Route: 064
     Dates: start: 20150327, end: 20150331
  11. REMICADE [Suspect]
     Active Substance: INFLIXIMAB
     Dosage: 5 MG/KG, UNK
     Route: 064
     Dates: start: 20150401
  12. SPECIAFOLDINE [Suspect]
     Active Substance: FOLIC ACID
     Dosage: 5 MG, DAILY
     Route: 064
  13. PARACETAMOL [Concomitant]
     Active Substance: ACETAMINOPHEN
     Dosage: 1 G, 4X/DAY
     Route: 064

REACTIONS (2)
  - Maternal exposure during pregnancy [Fatal]
  - Foetal malformation [Fatal]

NARRATIVE: CASE EVENT DATE: 20150223
